FAERS Safety Report 8359561-2 (Version None)
Quarter: 2012Q2

REPORT INFORMATION
  Report Type: 
  Country: None (occurrence: None)
  Receive Date: 20120514
  Receipt Date: 20120514
  Transmission Date: 20120825
  Serious: No
  Sender: FDA-Public Use
  Company Number: None

PATIENT
  Sex: Female

DRUGS (2)
  1. SUTENT [Suspect]
     Dosage: 50MG DAILY ORALLY
     Route: 048
     Dates: start: 20120326, end: 20120510
  2. SUTENT [Suspect]
     Dosage: 25MG DAILY ORALLY
     Route: 048

REACTIONS (4)
  - NAUSEA [None]
  - FATIGUE [None]
  - BLOOD PRESSURE INCREASED [None]
  - HEADACHE [None]
